FAERS Safety Report 5735413-9 (Version None)
Quarter: 2008Q2

REPORT INFORMATION
  Report Type: 
  Country: None (occurrence: None)
  Receive Date: 20080512
  Receipt Date: 20080506
  Transmission Date: 20081010
  Serious: Yes (Death)
  Sender: FDA-Public Use
  Company Number: IT-ASTRAZENECA-2008SE02303

PATIENT
  Age: 13976 Day
  Sex: Male

DRUGS (12)
  1. MERREM [Suspect]
     Indication: BRAIN ABSCESS
     Route: 042
     Dates: start: 20080201, end: 20080211
  2. CLINDAMYCIN HCL [Suspect]
     Indication: BRAIN ABSCESS
     Route: 051
     Dates: start: 20080201, end: 20080208
  3. DARAPRIM [Suspect]
     Indication: CEREBRAL TOXOPLASMOSIS
     Route: 048
     Dates: start: 20080202, end: 20080208
  4. NICOZID [Concomitant]
     Dates: start: 20070901
  5. MYCOBUTIN [Concomitant]
     Dates: start: 20070901
  6. TRUVADA [Concomitant]
     Dates: start: 20070901
  7. KALETRA [Concomitant]
     Dates: start: 20070901
  8. DOBETIN [Concomitant]
     Route: 048
     Dates: start: 20070901
  9. FERROFOLIN [Concomitant]
     Dates: start: 20070901
  10. GARDENALE [Concomitant]
     Dates: start: 20070901, end: 20080129
  11. KEPPRA [Concomitant]
     Dates: start: 20080129, end: 20080204
  12. KEPPRA [Concomitant]
     Dates: start: 20080204, end: 20080217

REACTIONS (1)
  - STEVENS-JOHNSON SYNDROME [None]
